FAERS Safety Report 4512923-3 (Version None)
Quarter: 2004Q4

REPORT INFORMATION
  Report Type: 
  Country: None (occurrence: None)
  Receive Date: 20041124
  Receipt Date: 20041124
  Transmission Date: 20050328
  Serious: Yes (Death)
  Sender: FDA-Public Use
  Company Number: None

PATIENT
  Age: 48 Year
  Sex: Male
  Weight: 102 kg

DRUGS (13)
  1. VELCADE [Suspect]
     Indication: METASTATIC MALIGNANT MELANOMA
     Dosage: 1.3 MG/M2 2.7 MG  IV
     Route: 042
     Dates: start: 20041005, end: 20041116
  2. TEMOZOLOMIDE [Suspect]
     Indication: METASTATIC MALIGNANT MELANOMA
     Dosage: 75 MG/M2 160 MG ORAL
     Route: 048
     Dates: start: 20041013, end: 20041122
  3. AMOXICILLIN [Concomitant]
  4. DECADRON [Concomitant]
  5. TESTOSTERONE PATCH [Concomitant]
  6. ATIVAN [Concomitant]
  7. DIOVAN [Concomitant]
  8. OXYCONTIN [Concomitant]
  9. ROXICODONE [Concomitant]
  10. LEXAPRO [Concomitant]
  11. NITROGLYCERIN [Concomitant]
  12. FERROUS GLUCONATE [Concomitant]
  13. VALIUM [Concomitant]

REACTIONS (4)
  - BODY TEMPERATURE INCREASED [None]
  - COMA [None]
  - GASTRIC DISORDER [None]
  - RESTLESSNESS [None]
